FAERS Safety Report 9390697 (Version 1)
Quarter: 2013Q3

REPORT INFORMATION
  Report Type: Spontaneous
  Country: US (occurrence: US)
  Receive Date: 20130709
  Receipt Date: 20130709
  Transmission Date: 20140515
  Serious: Yes (Hospitalization)
  Sender: FDA-Public Use
  Company Number: US-JNJFOC-20130700498

PATIENT
  Sex: Female
  Weight: 79.83 kg

DRUGS (20)
  1. REMICADE [Suspect]
     Indication: RHEUMATOID ARTHRITIS
     Route: 042
  2. METHOTREXATE [Suspect]
     Indication: PRODUCT USED FOR UNKNOWN INDICATION
     Route: 065
  3. CORTISONE [Concomitant]
     Route: 065
  4. MOTRIN [Concomitant]
     Route: 065
  5. CELEBREX [Concomitant]
     Route: 065
  6. LEFLUNOMIDE [Concomitant]
     Route: 065
     Dates: start: 201210, end: 201212
  7. PLAQUENIL [Concomitant]
     Route: 065
  8. PREDNISONE [Concomitant]
     Route: 065
  9. PREDNISONE [Concomitant]
     Route: 065
  10. ABIRATERONE ACETATE [Concomitant]
     Route: 065
  11. ASPIRIN [Concomitant]
     Route: 065
  12. ASPIRIN [Concomitant]
     Route: 065
  13. ASPIRIN [Concomitant]
     Route: 065
  14. ASPIRIN [Concomitant]
     Route: 065
  15. KETOPROFEN [Concomitant]
     Route: 065
  16. PROZAC [Concomitant]
     Route: 065
  17. PROZAC [Concomitant]
     Route: 065
  18. KENALOG [Concomitant]
     Indication: ARTHRALGIA
     Route: 065
  19. FOLIC ACID [Concomitant]
     Route: 065
  20. LEVOTHYROXINE [Concomitant]
     Indication: THYROID DISORDER
     Route: 065

REACTIONS (3)
  - Tremor [Unknown]
  - Muscle spasms [Unknown]
  - Adverse event [Unknown]
